FAERS Safety Report 8539861-3 (Version None)
Quarter: 2012Q3

REPORT INFORMATION
  Report Type: 
  Country: None (occurrence: None)
  Receive Date: 20120726
  Receipt Date: 20120723
  Transmission Date: 20120928
  Serious: Yes (Hospitalization, Other)
  Sender: FDA-Public Use
  Company Number: US-PFIZER INC-2009309145

PATIENT
  Sex: Male
  Weight: 51 kg

DRUGS (2)
  1. DILANTIN [Suspect]
     Indication: CONVULSION PROPHYLAXIS
     Dosage: 100 MG THREE CAPSULES AT BED TIME
     Route: 048
     Dates: start: 20090514, end: 20090613
  2. DICLOFENAC [Concomitant]
     Indication: INFLAMMATION
     Dosage: 75 MG, 2X/DAY
     Route: 048
     Dates: start: 20090519, end: 20100520

REACTIONS (1)
  - STEVENS-JOHNSON SYNDROME [None]
